FAERS Safety Report 7261341-6 (Version None)
Quarter: 2011Q1

REPORT INFORMATION
  Report Type: 
  Country: None (occurrence: None)
  Receive Date: 20110130
  Receipt Date: 20101011
  Transmission Date: 20110831
  Serious: No
  Sender: FDA-Public Use
  Company Number: US-ABBOTT-10P-163-0677375-00

PATIENT
  Age: 68 Year
  Sex: Female

DRUGS (11)
  1. CALCIUM/VIT D [Concomitant]
     Indication: PRODUCT USED FOR UNKNOWN INDICATION
     Dosage: 600/200 MG
  2. HUMIRA [Suspect]
     Indication: PSORIASIS
     Dates: start: 20100901
  3. NATELOL [Concomitant]
     Indication: BLOOD PRESSURE
  4. ESTER C [Concomitant]
     Indication: PRODUCT USED FOR UNKNOWN INDICATION
  5. VERAMYST [Concomitant]
     Indication: HYPERSENSITIVITY
  6. SPIRIVA [Concomitant]
     Indication: CHRONIC OBSTRUCTIVE PULMONARY DISEASE
  7. PRAVASTATIN [Concomitant]
     Indication: BLOOD CHOLESTEROL
     Route: 048
  8. PRILOSEC [Concomitant]
     Indication: GASTROOESOPHAGEAL REFLUX DISEASE
  9. POTASSIUM [Concomitant]
     Indication: MINERAL SUPPLEMENTATION
  10. DIOVAN HCT [Concomitant]
     Indication: BLOOD PRESSURE
     Dosage: 80/12.5 MG
  11. MULTIVIT [Concomitant]
     Indication: PRODUCT USED FOR UNKNOWN INDICATION

REACTIONS (2)
  - CONTUSION [None]
  - RASH [None]
